FAERS Safety Report 9670322 (Version 2)
Quarter: 2013Q4

REPORT INFORMATION
  Report Type: Spontaneous
  Country: JP (occurrence: None)
  Receive Date: 20131028
  Receipt Date: 20131105
  Transmission Date: 20140711
  Serious: Yes (Hospitalization)
  Sender: FDA-Public Use
  Company Number: 2013038513

PATIENT
  Age: 15 Year
  Sex: Female

DRUGS (4)
  1. IMMUNOGLOBULIN HUMAN NORMAL [Suspect]
     Indication: PRIMARY IMMUNODEFICIENCY SYNDROME
     Route: 058
     Dates: start: 20120130
  2. MUCODYNE(CARBOCISTEINE) [Concomitant]
  3. CALRITH(CLARITHROMYCIN) [Concomitant]
  4. LEFTOSE/(LYSOZYME) [Concomitant]

REACTIONS (6)
  - Asthma [None]
  - Pyrexia [None]
  - Headache [None]
  - Meningitis aseptic [None]
  - Cough [None]
  - Sinusitis [None]
